FAERS Safety Report 4476431-0 (Version None)
Quarter: 2004Q4

REPORT INFORMATION
  Report Type: 
  Country: None (occurrence: None)
  Receive Date: 20041016
  Receipt Date: 20041001
  Transmission Date: 20050328
  Serious: Yes (Hospitalization)
  Sender: FDA-Public Use
  Company Number: US-MERCK-0410USA00257

PATIENT
  Sex: Male

DRUGS (1)
  1. CANCIDAS [Suspect]
     Route: 042
     Dates: start: 20041001

REACTIONS (1)
  - INJECTION SITE REACTION [None]
